FAERS Safety Report 21139672 (Version 3)
Quarter: 2022Q3

REPORT INFORMATION
  Report Type: Spontaneous
  Country: KR (occurrence: KR)
  Receive Date: 20220727
  Receipt Date: 20220819
  Transmission Date: 20221027
  Serious: Yes (Hospitalization, Other)
  Sender: FDA-Public Use
  Company Number: KR-009507513-2207KOR007567

PATIENT
  Age: 51 Year
  Sex: Female
  Weight: 63.5 kg

DRUGS (3)
  1. KEYTRUDA [Suspect]
     Active Substance: PEMBROLIZUMAB
     Dosage: 200 MILLIGRAM
     Route: 042
     Dates: start: 20220701, end: 20220718
  2. LENVATINIB MESYLATE [Suspect]
     Active Substance: LENVATINIB MESYLATE
     Indication: Endometrial cancer
     Dosage: 20 MILLIGRAM
     Route: 048
     Dates: start: 20220701, end: 20220718
  3. OMETAN [Concomitant]
     Indication: Cardiovascular disorder
     Dosage: 10 MILLIGRAM
     Route: 048
     Dates: start: 20220701

REACTIONS (2)
  - Dyspnoea exertional [Recovered/Resolved]
  - Cardiac failure acute [Recovered/Resolved]

NARRATIVE: CASE EVENT DATE: 20220716
